FAERS Safety Report 7470282-0 (Version None)
Quarter: 2011Q2

REPORT INFORMATION
  Report Type: 
  Country: None (occurrence: None)
  Receive Date: 20110510
  Receipt Date: 20110505
  Transmission Date: 20111010
  Serious: Yes (Hospitalization)
  Sender: FDA-Public Use
  Company Number: MX-SANOFI-AVENTIS-2011SA028014

PATIENT
  Age: 82 Year
  Sex: Female

DRUGS (4)
  1. CINNARIZINE [Concomitant]
     Route: 048
  2. SINEMET [Concomitant]
     Indication: PARKINSON'S DISEASE
     Route: 048
  3. AMARYL [Suspect]
     Indication: TYPE 2 DIABETES MELLITUS
     Route: 048
     Dates: end: 20110504
  4. SIFROL [Concomitant]
     Indication: PARKINSON'S DISEASE
     Route: 048

REACTIONS (5)
  - GASTROINTESTINAL INFECTION [None]
  - VOMITING [None]
  - HYPERGLYCAEMIA [None]
  - DIARRHOEA [None]
  - DEHYDRATION [None]
